FAERS Safety Report 9390325 (Version 3)
Quarter: 2016Q2

REPORT INFORMATION
  Report Type: Report from Study
  Country: US (occurrence: US)
  Receive Date: 20130709
  Receipt Date: 20160527
  Transmission Date: 20160815
  Serious: Yes (Hospitalization)
  Sender: FDA-Public Use
  Company Number: US-ROCHE-1246074

PATIENT
  Age: 14 Year
  Sex: Male
  Weight: 60.8 kg

DRUGS (11)
  1. FEXOFENADINE [Concomitant]
     Active Substance: FEXOFENADINE\FEXOFENADINE HYDROCHLORIDE
     Route: 065
  2. ZYRTEC [Concomitant]
     Active Substance: CETIRIZINE HYDROCHLORIDE
     Route: 048
  3. DULERA [Concomitant]
     Active Substance: FORMOTEROL FUMARATE DIHYDRATE\MOMETASONE FUROATE
     Dosage: 200/5 MCG 2 PUFF
     Route: 065
  4. XOLAIR [Suspect]
     Active Substance: OMALIZUMAB
     Indication: RHINITIS ALLERGIC
  5. FLONASE (UNITED STATES) [Concomitant]
     Route: 045
  6. MOMETASONE [Concomitant]
     Active Substance: MOMETASONE
     Route: 055
  7. EPIPEN [Concomitant]
     Active Substance: EPINEPHRINE
  8. XOLAIR [Suspect]
     Active Substance: OMALIZUMAB
     Indication: ASTHMA
  9. SERTRALINE [Concomitant]
     Active Substance: SERTRALINE HYDROCHLORIDE
  10. XOLAIR [Suspect]
     Active Substance: OMALIZUMAB
     Indication: OBSTRUCTIVE AIRWAYS DISORDER
     Route: 058
     Dates: start: 201204
  11. CETIRIZINE [Concomitant]
     Active Substance: CETIRIZINE HYDROCHLORIDE
     Route: 065

REACTIONS (10)
  - Asthma [Recovered/Resolved]
  - Throat tightness [Recovering/Resolving]
  - Wheezing [Recovered/Resolved]
  - Off label use [Unknown]
  - Viral upper respiratory tract infection [Recovered/Resolved]
  - Chest discomfort [Recovering/Resolving]
  - Panic reaction [Unknown]
  - Dyspnoea [Unknown]
  - Vocal cord disorder [Unknown]
  - Cough [Recovered/Resolved]

NARRATIVE: CASE EVENT DATE: 20130324
